FAERS Safety Report 25460948 (Version 1)
Quarter: 2025Q2

REPORT INFORMATION
  Report Type: Spontaneous
  Country: IT (occurrence: IT)
  Receive Date: 20250620
  Receipt Date: 20250620
  Transmission Date: 20250717
  Serious: Yes (Death)
  Sender: MYLAN
  Company Number: IT-MYLANLABS-2025M1050298

PATIENT
  Age: 58 Year
  Sex: Male

DRUGS (2)
  1. CITALOPRAM [Suspect]
     Active Substance: CITALOPRAM
     Indication: Product used for unknown indication
  2. CLONAZEPAM [Suspect]
     Active Substance: CLONAZEPAM
     Indication: Product used for unknown indication

REACTIONS (2)
  - Toxicity to various agents [Fatal]
  - Drug abuse [Fatal]
